FAERS Safety Report 9115997 (Version 2)
Quarter: 2013Q2

REPORT INFORMATION
  Report Type: Report from Study
  Country: FR (occurrence: FR)
  Receive Date: 20130225
  Receipt Date: 20130402
  Transmission Date: 20140414
  Serious: Yes (Other)
  Sender: FDA-Public Use
  Company Number: FR-009507513-1210FRA013794

PATIENT
  Age: 74 Year
  Sex: Female
  Weight: 62 kg

DRUGS (4)
  1. PRE TRIAL THERAPY [Suspect]
     Indication: HEPATITIS C
     Route: 048
  2. REBETOL [Suspect]
     Indication: HEPATITIS C
     Dosage: 1000 MG, QD
     Route: 048
     Dates: start: 20110404
  3. VIRAFERONPEG [Suspect]
     Indication: HEPATITIS C
     Dosage: 150 MICROGRAM, QW
     Route: 058
     Dates: start: 20110404
  4. LEVOTHYROX [Concomitant]
     Indication: THYROIDITIS
     Dosage: 62.5 MCG, QD

REACTIONS (1)
  - Neutropenia [Recovered/Resolved]
